FAERS Safety Report 9524474 (Version 3)
Quarter: 2013Q3

REPORT INFORMATION
  Report Type: Report from Study
  Country: CN (occurrence: CN)
  Receive Date: 20130916
  Receipt Date: 20130919
  Transmission Date: 20140515
  Serious: Yes (Hospitalization)
  Sender: FDA-Public Use
  Company Number: CN-BAYER-2013-103947

PATIENT
  Sex: Male

DRUGS (1)
  1. NEXAVAR [Suspect]
     Indication: HEPATOCELLULAR CARCINOMA
     Dosage: 400 MG, BID
     Dates: start: 20130805, end: 20130901

REACTIONS (4)
  - Gastric haemorrhage [Recovered/Resolved]
  - Dysphonia [None]
  - Haematemesis [Recovered/Resolved]
  - Faeces discoloured [Recovered/Resolved]
